FAERS Safety Report 7609273-5 (Version None)
Quarter: 2011Q3

REPORT INFORMATION
  Report Type: 
  Country: None (occurrence: None)
  Receive Date: 20110713
  Receipt Date: 20110713
  Transmission Date: 20111222
  Serious: Yes (Other)
  Sender: FDA-Public Use
  Company Number: None

PATIENT
  Sex: Female
  Weight: 100.9 kg

DRUGS (7)
  1. LEXAPRO [Suspect]
     Indication: POST CONCUSSION SYNDROME
     Dosage: 20 MG LEXAPRO 1X DAILY ORAL TABLET
     Route: 048
     Dates: start: 20070301, end: 20090501
  2. LEXAPRO [Suspect]
     Indication: DEPRESSION
     Dosage: 20 MG LEXAPRO 1X DAILY ORAL TABLET
     Route: 048
     Dates: start: 20070301, end: 20090501
  3. NAPROXEN SODIUM [Concomitant]
  4. MAXCIDE [Concomitant]
  5. THYROID HORMONE THERAPY [Concomitant]
  6. CELEXA [Concomitant]
  7. TAHITI TRIM FEMALE HORMONE CREAM [Concomitant]

REACTIONS (19)
  - WEIGHT INCREASED [None]
  - NAIL GROWTH ABNORMAL [None]
  - MOOD ALTERED [None]
  - IRRITABILITY [None]
  - MANIA [None]
  - HAIR GROWTH ABNORMAL [None]
  - KLEPTOMANIA [None]
  - DELUSION [None]
  - WEIGHT LOSS POOR [None]
  - DEPERSONALISATION [None]
  - DRY MOUTH [None]
  - IMPULSIVE BEHAVIOUR [None]
  - GRANDIOSITY [None]
  - ACNE [None]
  - SOMNOLENCE [None]
  - MUSCLE TWITCHING [None]
  - ALOPECIA [None]
  - ONYCHOCLASIS [None]
  - IMPRISONMENT [None]
